FAERS Safety Report 7858103-5 (Version None)
Quarter: 2011Q4

REPORT INFORMATION
  Report Type: 
  Country: None (occurrence: None)
  Receive Date: 20111027
  Receipt Date: 20111011
  Transmission Date: 20120403
  Serious: Yes (Other)
  Sender: FDA-Public Use
  Company Number: US-BAYER-2011-022531

PATIENT
  Sex: Female

DRUGS (6)
  1. PANTOPRAZOLE [Concomitant]
     Dosage: 40 MG, UNK
     Dates: start: 20090414
  2. PHENTERMINE [Concomitant]
     Dosage: 30 MG, UNK
     Dates: start: 20090108
  3. YAZ [Suspect]
     Dosage: UNK
     Dates: start: 20071201, end: 20091101
  4. YASMIN [Suspect]
     Dosage: UNK
     Dates: start: 20071201, end: 20091101
  5. PENICILLIN VK [Concomitant]
     Dosage: 500 MG, UNK
     Dates: start: 20090202
  6. HYDROCODONE BITARTRATE AND ACETAMINOPHEN [Concomitant]
     Dosage: UNK
     Dates: start: 20090414

REACTIONS (2)
  - GALLBLADDER DISORDER [None]
  - CHOLELITHIASIS [None]
